FAERS Safety Report 6097140-0 (Version None)
Quarter: 2009Q1

REPORT INFORMATION
  Report Type: 
  Country: None (occurrence: None)
  Receive Date: 20090227
  Receipt Date: 20090219
  Transmission Date: 20090719
  Serious: Yes (Hospitalization, Other)
  Sender: FDA-Public Use
  Company Number: US-AMGEN-QUU282272

PATIENT
  Sex: Female

DRUGS (1)
  1. ENBREL [Suspect]
     Indication: PSORIASIS
     Route: 058
     Dates: start: 20040902, end: 20050101

REACTIONS (7)
  - GASTRITIS EROSIVE [None]
  - HIATUS HERNIA [None]
  - OSTEOMYELITIS [None]
  - PNEUMONIA [None]
  - STAPHYLOCOCCAL INFECTION [None]
  - TOE AMPUTATION [None]
  - WOUND INFECTION [None]
